FAERS Safety Report 21692363 (Version 1)
Quarter: 2022Q4

REPORT INFORMATION
  Report Type: Spontaneous
  Country: US (occurrence: US)
  Receive Date: 20221207
  Receipt Date: 20221207
  Transmission Date: 20230112
  Serious: No
  Sender: FDA-Public Use
  Company Number: US-BRISTOL-MYERS SQUIBB COMPANY-2022-149068

PATIENT
  Age: 60 Year
  Sex: Male
  Weight: 104.77 kg

DRUGS (1)
  1. REVLIMID [Suspect]
     Active Substance: LENALIDOMIDE
     Indication: Plasma cell myeloma
     Route: 048
     Dates: start: 20221115, end: 20221129

REACTIONS (3)
  - Rash [Unknown]
  - Urticaria [Unknown]
  - Dry skin [Unknown]

NARRATIVE: CASE EVENT DATE: 20221101
